FAERS Safety Report 25806706 (Version 1)
Quarter: 2025Q3

REPORT INFORMATION
  Report Type: Spontaneous
  Country: US (occurrence: US)
  Receive Date: 20250916
  Receipt Date: 20250916
  Transmission Date: 20251020
  Serious: Yes (Hospitalization)
  Sender: AUROBINDO
  Company Number: US-AUROBINDO-AUR-APL-2025-046572

PATIENT
  Age: 76 Year
  Sex: Male

DRUGS (1)
  1. DEXAMETHASONE [Suspect]
     Active Substance: DEXAMETHASONE
     Indication: Drug reaction with eosinophilia and systemic symptoms
     Route: 065

REACTIONS (9)
  - Hyperglycaemia [Unknown]
  - Drug ineffective [Unknown]
  - Decreased appetite [Unknown]
  - Muscular weakness [Unknown]
  - Rash maculo-papular [Unknown]
  - Tachycardia [Unknown]
  - Lymphadenopathy [Unknown]
  - Weight decreased [Unknown]
  - Pyrexia [Unknown]
